FAERS Safety Report 25125762 (Version 2)
Quarter: 2025Q2

REPORT INFORMATION
  Report Type: Spontaneous
  Country: CA (occurrence: CA)
  Receive Date: 20250326
  Receipt Date: 20250630
  Transmission Date: 20250717
  Serious: Yes (Hospitalization)
  Sender: PFIZER
  Company Number: CA-PFIZER INC-202500064932

PATIENT
  Age: 64 Year
  Sex: Male

DRUGS (1)
  1. ABRILADA [Suspect]
     Active Substance: ADALIMUMAB-AFZB
     Indication: Hidradenitis
     Route: 058
     Dates: start: 20240405

REACTIONS (3)
  - Fall [Unknown]
  - Upper limb fracture [Unknown]
  - Hip fracture [Unknown]

NARRATIVE: CASE EVENT DATE: 20250101
